FAERS Safety Report 14813060 (Version 1)
Quarter: 2018Q2

REPORT INFORMATION
  Report Type: Spontaneous
  Country: US (occurrence: US)
  Receive Date: 20180426
  Receipt Date: 20180426
  Transmission Date: 20180711
  Serious: No
  Sender: FDA-Public Use
  Company Number: US-VIFOR (INTERNATIONAL) INC.-VIT-2016-03061

PATIENT
  Age: 55 Year
  Sex: Male

DRUGS (11)
  1. VELTASSA [Suspect]
     Active Substance: PATIROMER
     Indication: HYPERKALAEMIA
     Route: 048
     Dates: start: 20160329, end: 2016
  2. GLIPIZIDE. [Concomitant]
     Active Substance: GLIPIZIDE
  3. LASIX [Concomitant]
     Active Substance: FUROSEMIDE
  4. LISINOPRIL. [Concomitant]
     Active Substance: LISINOPRIL
  5. TYLENOL [Concomitant]
     Active Substance: ACETAMINOPHEN
  6. ALBUTEROL SULFATE. [Concomitant]
     Active Substance: ALBUTEROL SULFATE
  7. CHLORTALIDONE [Concomitant]
     Active Substance: CHLORTHALIDONE
  8. ACETYLSALICYLIC ACID [Concomitant]
     Active Substance: ASPIRIN
  9. CLONIDINE HYDROCHLORIDE. [Concomitant]
     Active Substance: CLONIDINE HYDROCHLORIDE
  10. SPIRONOLACTONE. [Concomitant]
     Active Substance: SPIRONOLACTONE
  11. ALLOPURINOL. [Concomitant]
     Active Substance: ALLOPURINOL

REACTIONS (2)
  - Renal pain [Not Recovered/Not Resolved]
  - Adverse drug reaction [Not Recovered/Not Resolved]

NARRATIVE: CASE EVENT DATE: 201606
